FAERS Safety Report 7119491-0 (Version None)
Quarter: 2010Q4

REPORT INFORMATION
  Report Type: 
  Country: None (occurrence: None)
  Receive Date: 20101123
  Receipt Date: 20101116
  Transmission Date: 20110411
  Serious: Yes (Other)
  Sender: FDA-Public Use
  Company Number: US-PFIZER INC-2010149277

PATIENT
  Sex: Male

DRUGS (3)
  1. TOVIAZ [Suspect]
     Dosage: 8 MG, 1X/DAY
     Route: 048
     Dates: start: 20101101, end: 20101116
  2. BENICAR [Concomitant]
     Dosage: 2 MG, 1X/DAY
     Route: 048
  3. ACETYLSALICYLIC ACID [Concomitant]
     Dosage: UNK
     Route: 048

REACTIONS (2)
  - NERVOUSNESS [None]
  - VISION BLURRED [None]
